FAERS Safety Report 18256859 (Version 1)
Quarter: 2020Q3

REPORT INFORMATION
  Report Type: Spontaneous
  Country: ES (occurrence: ES)
  Receive Date: 20200911
  Receipt Date: 20200911
  Transmission Date: 20201103
  Serious: Yes (Other)
  Sender: FDA-Public Use
  Company Number: ES-MYLANLABS-2020M1076932

PATIENT
  Age: 48 Year
  Sex: Male

DRUGS (3)
  1. LIORESAL [Concomitant]
     Active Substance: BACLOFEN
     Indication: QUADRIPARESIS
     Dosage: UNK
     Route: 048
  2. TRAZODONA                          /00447701/ [Interacting]
     Active Substance: TRAZODONE HYDROCHLORIDE
     Indication: NERVOUSNESS
     Dosage: 100 MILLIGRAM (100MG/48H, 2 DOSIS)
     Route: 048
     Dates: start: 20200801, end: 20200803
  3. LINEZOLID. [Suspect]
     Active Substance: LINEZOLID
     Indication: UROSEPSIS
     Dosage: UNK
     Route: 065
     Dates: start: 20200801, end: 20200805

REACTIONS (2)
  - Drug interaction [Unknown]
  - Inappropriate antidiuretic hormone secretion [Recovered/Resolved]

NARRATIVE: CASE EVENT DATE: 20200802
